FAERS Safety Report 20111474 (Version 2)
Quarter: 2021Q4

REPORT INFORMATION
  Report Type: Report from Study
  Country: US (occurrence: US)
  Receive Date: 20211125
  Receipt Date: 20211209
  Transmission Date: 20220303
  Serious: No
  Sender: FDA-Public Use
  Company Number: US-NOVARTISTESTPH-NVSC2021US269538

PATIENT
  Sex: Female

DRUGS (3)
  1. ENTRESTO [Suspect]
     Active Substance: SACUBITRIL\VALSARTAN
     Indication: Product used for unknown indication
     Dosage: 1 DF, BID (97/103 MG)
     Route: 048
     Dates: start: 2019
  2. ENTRESTO [Suspect]
     Active Substance: SACUBITRIL\VALSARTAN
     Dosage: 1.5 DF, QD
     Route: 048
  3. ENTRESTO [Suspect]
     Active Substance: SACUBITRIL\VALSARTAN
     Dosage: 1 DF, QD (SEVERAL YEARS)
     Route: 048

REACTIONS (5)
  - Dizziness [Unknown]
  - Fatigue [Unknown]
  - Asthenia [Unknown]
  - Feeling abnormal [Unknown]
  - Wrong technique in product usage process [Unknown]
